FAERS Safety Report 10548105 (Version 1)
Quarter: 2014Q4

REPORT INFORMATION
  Report Type: Spontaneous
  Country: US (occurrence: None)
  Receive Date: 20141027
  Receipt Date: 20141027
  Transmission Date: 20150529
  Serious: Yes (Hospitalization)
  Sender: FDA-Public Use
  Company Number: None

PATIENT
  Age: 57 Year
  Sex: Male
  Weight: 63.3 kg

DRUGS (2)
  1. ERTAPENEM [Suspect]
     Active Substance: ERTAPENEM
     Indication: UPPER RESPIRATORY TRACT INFECTION
     Dosage: 1 GM EVERY DAY IV
     Route: 042
     Dates: start: 20130828, end: 20130904
  2. CLOZAPINE. [Suspect]
     Active Substance: CLOZAPINE
     Indication: SCHIZOPHRENIA, PARANOID TYPE
     Route: 050
     Dates: start: 20030901

REACTIONS (3)
  - Delirium [None]
  - Seizure [None]
  - Dyskinesia [None]

NARRATIVE: CASE EVENT DATE: 20130901
